FAERS Safety Report 7949189-8 (Version None)
Quarter: 2011Q4

REPORT INFORMATION
  Report Type: 
  Country: None (occurrence: None)
  Receive Date: 20111129
  Receipt Date: 20111129
  Transmission Date: 20120403
  Serious: No
  Sender: FDA-Public Use
  Company Number: None

PATIENT
  Age: 64 Year
  Sex: Female

DRUGS (1)
  1. NITROFURANTOIN [Suspect]
     Dates: start: 20080529, end: 20101008

REACTIONS (13)
  - ASTHENIA [None]
  - HEPATIC NECROSIS [None]
  - CHRONIC HEPATITIS [None]
  - JAUNDICE [None]
  - LIVER TRANSPLANT [None]
  - HEPATOTOXICITY [None]
  - HEPATIC FAILURE [None]
  - HEPATIC FIBROSIS [None]
  - HAEMODIALYSIS [None]
  - POST PROCEDURAL BILE LEAK [None]
  - CHOLESTASIS [None]
  - OEDEMA [None]
  - AUTOIMMUNE HEPATITIS [None]
